FAERS Safety Report 6661432-4 (Version None)
Quarter: 2010Q1

REPORT INFORMATION
  Report Type: 
  Country: None (occurrence: None)
  Receive Date: 20100331
  Receipt Date: 20100324
  Transmission Date: 20100710
  Serious: Yes (Death, Hospitalization, Other)
  Sender: FDA-Public Use
  Company Number: PHHY2010DE18485

PATIENT
  Sex: Male
  Weight: 78 kg

DRUGS (7)
  1. ALISKIREN ALI+ [Suspect]
     Indication: HYPERTENSION
     Dosage: 150 MG, PER DAY
     Dates: start: 20090120, end: 20090401
  2. EUCREAS [Suspect]
     Indication: DIABETES MELLITUS
     Dosage: 1000/50 MG
     Route: 048
     Dates: start: 20090417
  3. DIOVAN HCT [Suspect]
     Indication: HYPERTENSION
     Dosage: 160/25 MG/DAY
     Route: 048
     Dates: start: 20050101
  4. ANTIPLATELET (NSAR) [Concomitant]
  5. ANTICOAGULANTS [Concomitant]
     Route: 048
  6. METOPROLOL SUCCINATE [Concomitant]
     Indication: HYPERTENSION
     Dosage: 47.5 MG, PER DAY
     Route: 048
  7. SIMVASTATIN [Concomitant]
     Indication: HYPERLIPIDAEMIA
     Dosage: 20 MG, PER DAY
     Route: 048
     Dates: start: 20060719

REACTIONS (3)
  - ATRIAL FIBRILLATION [None]
  - BLADDER CANCER [None]
  - LEFT VENTRICULAR HYPERTROPHY [None]
